FAERS Safety Report 15374620 (Version 3)
Quarter: 2019Q1

REPORT INFORMATION
  Report Type: Spontaneous
  Country: IT (occurrence: IT)
  Receive Date: 20180912
  Receipt Date: 20190204
  Transmission Date: 20190417
  Serious: Yes (Hospitalization)
  Sender: FDA-Public Use
  Company Number: IT-PFIZER INC-2018365267

PATIENT
  Age: 58 Year
  Sex: Male

DRUGS (2)
  1. METHADONE HYDROCHLORIDE. [Suspect]
     Active Substance: METHADONE HYDROCHLORIDE
     Dosage: 50 ML, SINGLE (ABUSE/MISUSE)
     Route: 048
     Dates: start: 20180725, end: 20180725
  2. TAVOR (LORAZEPAM) [Suspect]
     Active Substance: LORAZEPAM
     Dosage: 50 MG, SINGLE (ABUSE.MISUSE)
     Route: 048
     Dates: start: 20180725, end: 20180725

REACTIONS (3)
  - Suicide attempt [Recovering/Resolving]
  - Long QT syndrome [Recovering/Resolving]
  - Drug abuse [Recovering/Resolving]

NARRATIVE: CASE EVENT DATE: 20180725
